FAERS Safety Report 16088338 (Version 1)
Quarter: 2019Q1

REPORT INFORMATION
  Report Type: Spontaneous
  Country: US (occurrence: US)
  Receive Date: 20190319
  Receipt Date: 20190319
  Transmission Date: 20190418
  Serious: No
  Sender: FDA-Public Use
  Company Number: US-TAKEDA-2019TUS014010

PATIENT
  Sex: Male

DRUGS (2)
  1. COLCRYS [Concomitant]
     Active Substance: COLCHICINE
     Indication: GOUT
     Dosage: UNK
  2. ULORIC [Suspect]
     Active Substance: FEBUXOSTAT
     Indication: GOUT
     Dosage: UNK
     Route: 065
     Dates: start: 2017

REACTIONS (2)
  - Coeliac disease [Unknown]
  - Gout [Recovered/Resolved]

NARRATIVE: CASE EVENT DATE: 201902
